FAERS Safety Report 19967669 (Version 1)
Quarter: 2021Q4

REPORT INFORMATION
  Report Type: Spontaneous
  Country: US (occurrence: US)
  Receive Date: 20211014
  Receipt Date: 20211014
  Transmission Date: 20220303
  Serious: Yes (Hospitalization)
  Sender: FDA-Public Use
  Company Number: None

PATIENT
  Age: 67 Year
  Sex: Female
  Weight: 71.7 kg

DRUGS (3)
  1. TAXOL [Suspect]
     Active Substance: PACLITAXEL
     Dates: end: 20211008
  2. PERTUZUMAB [Suspect]
     Active Substance: PERTUZUMAB
     Dates: end: 20211008
  3. HERCEPTIN [Suspect]
     Active Substance: TRASTUZUMAB
     Dates: end: 20211008

REACTIONS (6)
  - Anaphylactic reaction [None]
  - Hot flush [None]
  - Abdominal pain [None]
  - Headache [None]
  - Hyperhidrosis [None]
  - Oxygen saturation decreased [None]

NARRATIVE: CASE EVENT DATE: 20211008
